FAERS Safety Report 4498938-2 (Version None)
Quarter: 2004Q4

REPORT INFORMATION
  Report Type: 
  Country: None (occurrence: None)
  Receive Date: 20041108
  Receipt Date: 20041025
  Transmission Date: 20050328
  Serious: Yes (Hospitalization, Disabling)
  Sender: FDA-Public Use
  Company Number: A0531136A

PATIENT
  Age: 59 Year
  Sex: Female

DRUGS (5)
  1. COMMIT [Suspect]
     Indication: EX-SMOKER
     Dosage: 4 MG / SEE DOSAGE TEXT / TRANSBUCC
     Route: 002
     Dates: start: 20031013
  2. COMMIT [Suspect]
     Indication: EX-SMOKER
     Dosage: 2 MG / TRANSBUCCAL
     Route: 002
     Dates: start: 20030301
  3. CALCIUM CARBONATE TABLET (CALCIUM CARBONATE) [Suspect]
     Indication: MINERAL SUPPLEMENTATION
     Dosage: 2 TABLET / TWICE PER DAY / ORAL
     Route: 048
  4. ALENDRONATE SODIUM [Concomitant]
  5. OMEPRAZOLE [Concomitant]

REACTIONS (5)
  - BUNION [None]
  - DRUG WITHDRAWAL SYNDROME [None]
  - FEMUR FRACTURE [None]
  - PHARMACEUTICAL PRODUCT COMPLAINT [None]
  - WALKING AID USER [None]
